FAERS Safety Report 4592775-6 (Version None)
Quarter: 2005Q1

REPORT INFORMATION
  Report Type: 
  Country: None (occurrence: None)
  Receive Date: 20050222
  Receipt Date: 20050207
  Transmission Date: 20050727
  Serious: No
  Sender: FDA-Public Use
  Company Number: 10211

PATIENT
  Age: 73 Year
  Sex: Female

DRUGS (5)
  1. VINCRISTINE [Suspect]
     Dates: start: 20040908
  2. DOXORUBICIN HCL [Suspect]
     Dates: start: 20040908
  3. PREDNISOLONE [Suspect]
     Dates: start: 20040908
  4. RITUXIMAB [Suspect]
     Dates: start: 20040908
  5. CYCLOPHOSPHAMIDE [Suspect]
     Dates: start: 20040908

REACTIONS (1)
  - FEBRILE NEUTROPENIA [None]
